FAERS Safety Report 25340449 (Version 1)
Quarter: 2025Q2

REPORT INFORMATION
  Report Type: Report from Study
  Country: KR (occurrence: KR)
  Receive Date: 20250521
  Receipt Date: 20250521
  Transmission Date: 20250717
  Serious: Yes (Hospitalization)
  Sender: CELLTRION
  Company Number: KR-CELLTRION INC.-2025KR015148

PATIENT

DRUGS (23)
  1. ADALIMUMAB-AATY [Suspect]
     Active Substance: ADALIMUMAB-AATY
     Indication: Rheumatoid arthritis
     Dosage: 40 MG, BIWEEKLY (AMOUNT OF SINGLE DOSE IN MG: 40)
     Route: 058
     Dates: start: 20240828, end: 20240828
  2. ADALIMUMAB-AATY [Suspect]
     Active Substance: ADALIMUMAB-AATY
     Dosage: 40 MG, BIWEEKLY (AMOUNT OF SINGLE DOSE IN MG: 40)
     Route: 058
     Dates: start: 20240911, end: 20240911
  3. ADALIMUMAB-AATY [Suspect]
     Active Substance: ADALIMUMAB-AATY
     Dosage: 40 MG, BIWEEKLY (AMOUNT OF SINGLE DOSE IN MG: 40)
     Route: 058
     Dates: start: 20240925, end: 20240925
  4. ADALIMUMAB-AATY [Suspect]
     Active Substance: ADALIMUMAB-AATY
     Dosage: 40 MG, BIWEEKLY (AMOUNT OF SINGLE DOSE IN MG: 40)
     Route: 058
     Dates: start: 20241009, end: 20241009
  5. ADALIMUMAB-AATY [Suspect]
     Active Substance: ADALIMUMAB-AATY
     Dosage: 40 MG, BIWEEKLY (AMOUNT OF SINGLE DOSE IN MG: 40)
     Route: 058
     Dates: start: 20241023, end: 20241023
  6. ADALIMUMAB-AATY [Suspect]
     Active Substance: ADALIMUMAB-AATY
     Dosage: 40 MG, BIWEEKLY (AMOUNT OF SINGLE DOSE IN MG: 40)
     Route: 058
     Dates: start: 20241106, end: 20241106
  7. ADALIMUMAB-AATY [Suspect]
     Active Substance: ADALIMUMAB-AATY
     Dosage: 40 MG, BIWEEKLY (AMOUNT OF SINGLE DOSE IN MG: 40)
     Route: 058
     Dates: start: 20241127, end: 20241127
  8. ADALIMUMAB-AATY [Suspect]
     Active Substance: ADALIMUMAB-AATY
     Dosage: 40 MG, BIWEEKLY (AMOUNT OF SINGLE DOSE IN MG: 40)
     Route: 058
     Dates: start: 20241211, end: 20241211
  9. ADALIMUMAB-AATY [Suspect]
     Active Substance: ADALIMUMAB-AATY
     Dosage: 40 MG, BIWEEKLY (AMOUNT OF SINGLE DOSE IN MG: 40)
     Route: 058
     Dates: start: 20241225, end: 20241225
  10. ADALIMUMAB-AATY [Suspect]
     Active Substance: ADALIMUMAB-AATY
     Dosage: 40 MG, BIWEEKLY (AMOUNT OF SINGLE DOSE IN MG: 40)
     Route: 058
     Dates: start: 20250108, end: 20250108
  11. ADALIMUMAB-AATY [Suspect]
     Active Substance: ADALIMUMAB-AATY
     Dosage: 40 MG, BIWEEKLY (AMOUNT OF SINGLE DOSE IN MG: 40)
     Route: 058
     Dates: start: 20250122, end: 20250122
  12. ADALIMUMAB-AATY [Suspect]
     Active Substance: ADALIMUMAB-AATY
     Dosage: 40 MG, BIWEEKLY (AMOUNT OF SINGLE DOSE IN MG: 40)
     Route: 058
     Dates: start: 20250205, end: 20250205
  13. ADALIMUMAB-AATY [Suspect]
     Active Substance: ADALIMUMAB-AATY
     Dosage: 40 MG, BIWEEKLY (AMOUNT OF SINGLE DOSE IN MG: 40)
     Route: 058
     Dates: start: 20250219, end: 20250219
  14. METHOTREXATE [Concomitant]
     Active Substance: METHOTREXATE
     Indication: Rheumatoid arthritis
     Dosage: 3 TAB, ONCE A WEEK
     Route: 048
     Dates: start: 20230706
  15. METHYLON [METHYLPREDNISOLONE] [Concomitant]
     Indication: Rheumatoid arthritis
     Route: 048
     Dates: start: 20230706
  16. ULTRACET [Concomitant]
     Active Substance: ACETAMINOPHEN\TRAMADOL HYDROCHLORIDE
     Indication: Rheumatoid arthritis
     Route: 048
     Dates: start: 20240508
  17. REBAMIPIDE [Concomitant]
     Active Substance: REBAMIPIDE
     Indication: Prophylaxis
     Route: 048
     Dates: start: 20230309
  18. FOLIC ACID [Concomitant]
     Active Substance: FOLIC ACID
     Indication: Folate deficiency
     Route: 048
     Dates: start: 20230706
  19. TRESIBA [Concomitant]
     Active Substance: INSULIN DEGLUDEC
     Indication: Diabetes mellitus
     Route: 058
     Dates: start: 2000
  20. NOVORAPID [Concomitant]
     Active Substance: INSULIN ASPART
     Indication: Diabetes mellitus
     Route: 058
     Dates: start: 2000
  21. DIABEX [Concomitant]
     Active Substance: METFORMIN HYDROCHLORIDE
     Indication: Diabetes mellitus
     Route: 048
     Dates: start: 2000
  22. GUARDLET [Concomitant]
     Indication: Diabetes mellitus
     Route: 048
     Dates: start: 2022
  23. SALOTAN [Concomitant]
     Indication: Hypertension
     Route: 048
     Dates: start: 2022

REACTIONS (1)
  - Intestinal obstruction [Recovered/Resolved]

NARRATIVE: CASE EVENT DATE: 20241212
